FAERS Safety Report 10049191 (Version 1)
Quarter: 2014Q2

REPORT INFORMATION
  Report Type: Spontaneous
  Country: US (occurrence: US)
  Receive Date: 20140401
  Receipt Date: 20140401
  Transmission Date: 20141212
  Serious: Yes (Other)
  Sender: FDA-Public Use
  Company Number: US-BIOGENIDEC-2014BI026489

PATIENT
  Age: 24 Year
  Sex: Male

DRUGS (6)
  1. TYSABRI [Suspect]
     Indication: CROHN^S DISEASE
     Route: 042
  2. AZATHIOPRINE [Concomitant]
     Indication: CROHN^S DISEASE
  3. METHOTREXATE [Concomitant]
     Indication: CROHN^S DISEASE
  4. INFLIXIMAB [Concomitant]
     Indication: CROHN^S DISEASE
  5. ADALIMUMAB [Concomitant]
     Indication: CROHN^S DISEASE
  6. CERTOLIZUMAB [Concomitant]
     Indication: CROHN^S DISEASE

REACTIONS (1)
  - Hepatocellular carcinoma [Recovered/Resolved]
